FAERS Safety Report 8395608 (Version 4)
Quarter: 2013Q4

REPORT INFORMATION
  Report Type: Spontaneous
  Country: GB (occurrence: None)
  Receive Date: 20120126
  Receipt Date: 20131024
  Transmission Date: 20140711
  Serious: Yes (Death, Other)
  Sender: FDA-Public Use
  Company Number: GB-023530

PATIENT
  Age: 8 Year
  Sex: Female
  Weight: 22.4 kg

DRUGS (22)
  1. BUSULFAN [Suspect]
     Indication: THALASSAEMIA BETA
     Dosage: 14 MGKG, UNK
     Dates: start: 20110425
  2. CYCLOPHOSPHAMIDE [Suspect]
     Indication: THALASSAEMIA BETA
     Dosage: 200 MG/KG
  3. METHOTREXATE [Suspect]
     Indication: PROPHYLAXIS AGAINST GRAFT VERSUS HOST DISEASE
  4. ALEMTUZUMAB [Suspect]
     Indication: BONE MARROW CONDITIONING REGIMEN
     Dosage: 0.3 MG/KG
  5. CICLOSPORIN [Suspect]
     Indication: PROPHYLAXIS AGAINST GRAFT VERSUS HOST DISEASE
  6. ALLOPURINOL [Concomitant]
  7. AMPHOTERICIN B LIPOSOMAL [Concomitant]
  8. CASPOFUNGIN [Concomitant]
  9. DAPSONE [Concomitant]
  10. DEFIBROTIDE [Concomitant]
  11. FOLINIC ACID [Concomitant]
  12. GANICLOVIR [Concomitant]
  13. HYDROCORTISONE [Concomitant]
  14. ISONIAZID [Concomitant]
  15. LINEZOLID [Concomitant]
  16. MESNA [Concomitant]
  17. METRONIDAZOLE [Concomitant]
  18. OCTREOTIDE [Concomitant]
  19. PARACETAMOL [Concomitant]
  20. PETHIDINE [Concomitant]
  21. PHENYTOIN [Concomitant]
  22. THIOTEPA [Concomitant]

REACTIONS (17)
  - Pulmonary veno-occlusive disease [None]
  - Cytomegalovirus infection [None]
  - Mucosal inflammation [None]
  - Methylobacterium infection [None]
  - Bacterial sepsis [None]
  - Pulmonary haemorrhage [None]
  - Pneumonitis [None]
  - Adenovirus infection [None]
  - Pulmonary hypertension [None]
  - Respiratory failure [None]
  - Idiopathic pneumonia syndrome [None]
  - Malaise [None]
  - Haemodialysis [None]
  - Renal impairment [None]
  - Hepatic function abnormal [None]
  - Toxicity to various agents [None]
  - Liver disorder [None]
